FAERS Safety Report 6676440-7 (Version None)
Quarter: 2010Q2

REPORT INFORMATION
  Report Type: 
  Country: None (occurrence: None)
  Receive Date: 20100412
  Receipt Date: 20100406
  Transmission Date: 20101027
  Serious: Yes (Other)
  Sender: FDA-Public Use
  Company Number: US-SANOFI-AVENTIS-2010SA016007

PATIENT
  Age: 79 Year
  Sex: Female
  Weight: 73.18 kg

DRUGS (13)
  1. MULTAQ [Suspect]
     Indication: ATRIAL FIBRILLATION
     Route: 048
     Dates: start: 20100301
  2. MULTAQ [Suspect]
     Route: 048
     Dates: start: 20100308, end: 20100317
  3. LABETALOL HCL [Concomitant]
     Route: 048
  4. ISOSORBIDE DINITRATE [Concomitant]
  5. CLONIDINE [Concomitant]
  6. INSULIN [Concomitant]
  7. METHYLDOPA [Concomitant]
  8. AMLODIPINE [Concomitant]
  9. GLIPIZIDE [Concomitant]
  10. ASPIRIN [Concomitant]
  11. DONNATAL [Concomitant]
  12. LANSOPRAZOLE [Concomitant]
  13. GLYCERYL TRINITRATE [Concomitant]

REACTIONS (2)
  - HALLUCINATION [None]
  - VISION BLURRED [None]
